FAERS Safety Report 8541813-4 (Version None)
Quarter: 2012Q3

REPORT INFORMATION
  Report Type: 
  Country: None (occurrence: None)
  Receive Date: 20120726
  Receipt Date: 20110906
  Transmission Date: 20120928
  Serious: No
  Sender: FDA-Public Use
  Company Number: US-ASTRAZENECA-2011SE53491

PATIENT
  Age: 57 Year
  Sex: Male
  Weight: 122.5 kg

DRUGS (3)
  1. ALLOPURINOL [Concomitant]
  2. SEROQUEL XR [Suspect]
     Indication: DISTURBANCE IN ATTENTION
     Route: 048
     Dates: start: 20110816, end: 20110824
  3. CRESTOR [Concomitant]

REACTIONS (4)
  - DISORIENTATION [None]
  - SOMNOLENCE [None]
  - SEDATION [None]
  - OFF LABEL USE [None]
